FAERS Safety Report 11487873 (Version 4)
Quarter: 2015Q4

REPORT INFORMATION
  Report Type: Report from Study
  Country: PL (occurrence: PL)
  Receive Date: 20150909
  Receipt Date: 20151111
  Transmission Date: 20160304
  Serious: Yes (Hospitalization)
  Sender: FDA-Public Use
  Company Number: PL-PFIZER INC-2015271693

PATIENT
  Age: 74 Year
  Sex: Male
  Weight: 81 kg

DRUGS (3)
  1. TEMSIROLIMUS [Suspect]
     Active Substance: TEMSIROLIMUS
     Indication: MANTLE CELL LYMPHOMA
     Dosage: 50 MG, ONCE A WEEK
     Route: 042
     Dates: start: 20150522, end: 20150806
  2. PENESTER [Concomitant]
     Indication: BENIGN PROSTATIC HYPERPLASIA
     Dosage: UNK, 1X/DAY (QD)
     Route: 048
     Dates: start: 2005
  3. NEBIVOLOLUM [Concomitant]
     Indication: MYOCARDIAL ISCHAEMIA
     Dosage: UNK, 1X/DAY (QD)
     Route: 048
     Dates: start: 2014

REACTIONS (1)
  - Pneumonia [Recovered/Resolved]

NARRATIVE: CASE EVENT DATE: 20150812
